FAERS Safety Report 9731528 (Version 1)
Quarter: 2013Q4

REPORT INFORMATION
  Report Type: Spontaneous
  Country: US (occurrence: US)
  Receive Date: 20131203
  Receipt Date: 20131203
  Transmission Date: 20140711
  Serious: No
  Sender: FDA-Public Use
  Company Number: US-B.I. PHARMACEUTICALS,INC./RIDGEFIELD-2013-BI-38571BP

PATIENT
  Age: 69 Year
  Sex: Male

DRUGS (18)
  1. COMBIVENT [Suspect]
     Indication: CHRONIC OBSTRUCTIVE PULMONARY DISEASE
     Dosage: STRENGTH: 20 MCG / 100 MCG; DAILY DOSE: 80 MCG / 400 MCG
     Route: 055
     Dates: start: 20130913
  2. ATENOLOL [Concomitant]
     Indication: CORONARY ARTERY OCCLUSION
     Dosage: 25 MG
     Route: 048
  3. ARTIFICIAL TEARS [Concomitant]
     Indication: DRY EYE
     Dosage: STRENGTH: 1 DROP EACH EYE; DAILY DOSE: 1 DROP EACH EYE
  4. ATORVASTATIN [Concomitant]
     Indication: BLOOD CHOLESTEROL INCREASED
     Dosage: 80 MG
     Route: 048
  5. CARBOXYMETHYLCELLULOSE [Concomitant]
     Indication: DRY EYE
     Dosage: STRENGTH: 1 DROP EACH EYE;
  6. CYCLOBENZAPRINE [Concomitant]
     Indication: MUSCLE SPASMS
     Dosage: 30 MG
     Route: 048
  7. DICYCLOMINE HYDROCHLORIDE [Concomitant]
     Indication: GASTROOESOPHAGEAL REFLUX DISEASE
     Dosage: 40 MG
     Route: 048
  8. DOCUSATE SENNOSIDES [Concomitant]
     Dosage: 2 ANZ
  9. FENOFIBRATE [Concomitant]
     Indication: BLOOD CHOLESTEROL INCREASED
     Dosage: 145 MG
     Route: 048
  10. FLUTICASONE [Concomitant]
     Dosage: FORMULATION: NASAL SPRAY; STRENGTH: 1 SPRAY EACH NOSTRIL; DAILY DOSE: 1 SPRAY EACH NOSTRIL
     Route: 045
  11. HYDROCODONE ACETAMINOPHEN [Concomitant]
     Indication: ARTHRITIS
     Dosage: STRENGTH: 7.5 MG / 325 MG; DAILY DOSE: 22.5 MG / 975 MG
     Route: 048
  12. HYDROXYZINE PAMOATE [Concomitant]
     Dosage: 60 MG
     Route: 048
  13. LEVOTHYROXINE [Concomitant]
     Indication: HYPOTHYROIDISM
     Dosage: 125 MCG
     Route: 048
  14. LORAZEPAM [Concomitant]
     Indication: ANXIETY
     Dosage: 1 MG
     Route: 048
  15. NITROGLYCERIN- SUBLINGUAL [Concomitant]
     Indication: CHEST PAIN
  16. OMEPRAZOLE [Concomitant]
     Indication: GASTROOESOPHAGEAL REFLUX DISEASE
     Dosage: 40 MG
     Route: 048
  17. SALSALATE [Concomitant]
     Indication: ARTHRITIS
     Dosage: 3000 MG
     Route: 048
  18. ASPIRIN [Concomitant]
     Dosage: 81 MG
     Route: 048

REACTIONS (1)
  - Oropharyngeal pain [Not Recovered/Not Resolved]
